FAERS Safety Report 14393287 (Version 1)
Quarter: 2018Q1

REPORT INFORMATION
  Report Type: Spontaneous
  Country: SE (occurrence: SE)
  Receive Date: 20180116
  Receipt Date: 20180116
  Transmission Date: 20180509
  Serious: Yes (Hospitalization)
  Sender: FDA-Public Use
  Company Number: PHHY2018SE004720

PATIENT
  Age: 12 Year
  Sex: Male

DRUGS (1)
  1. METHOTREXATE. [Suspect]
     Active Substance: METHOTREXATE
     Indication: PRODUCT USED FOR UNKNOWN INDICATION
     Route: 065

REACTIONS (4)
  - Mucosal inflammation [Recovered/Resolved]
  - Febrile neutropenia [Recovered/Resolved]
  - Skin hyperpigmentation [Recovered/Resolved]
  - Petechiae [Recovered/Resolved]
